FAERS Safety Report 15254761 (Version 4)
Quarter: 2018Q3

REPORT INFORMATION
  Report Type: Spontaneous
  Country: US (occurrence: US)
  Receive Date: 20180808
  Receipt Date: 20180903
  Transmission Date: 20181010
  Serious: No
  Sender: FDA-Public Use
  Company Number: US-SA-2018SA214065

PATIENT
  Age: 70 Year
  Sex: Male

DRUGS (2)
  1. PRALUENT [Suspect]
     Active Substance: ALIROCUMAB
     Indication: BLOOD CHOLESTEROL INCREASED
     Dosage: 75 MG, QOW
     Route: 058
     Dates: start: 201806, end: 20180802
  2. ALIROCUMAB PREFILLED PEN [Suspect]
     Active Substance: ALIROCUMAB
     Indication: BLOOD CHOLESTEROL INCREASED
     Dosage: UNK UNK, QOW
     Route: 058
     Dates: start: 201806, end: 20180802

REACTIONS (20)
  - Insomnia [Unknown]
  - Pharyngeal oedema [Not Recovered/Not Resolved]
  - Fatigue [Unknown]
  - Feeling abnormal [Unknown]
  - Feeling abnormal [Unknown]
  - Hypersensitivity [Unknown]
  - Unevaluable event [Unknown]
  - Depression [Unknown]
  - Pruritus [Unknown]
  - Somatic symptom disorder [Unknown]
  - Impaired work ability [Unknown]
  - Hypoacusis [Unknown]
  - Confusional state [Unknown]
  - Personality change [Unknown]
  - Memory impairment [Unknown]
  - Asthma [Unknown]
  - Inflammation [Unknown]
  - Joint swelling [Unknown]
  - Cyst [Unknown]
  - Thinking abnormal [Unknown]

NARRATIVE: CASE EVENT DATE: 2018
